FAERS Safety Report 8178029-X (Version None)
Quarter: 2012Q1

REPORT INFORMATION
  Report Type: 
  Country: None (occurrence: None)
  Receive Date: 20120301
  Receipt Date: 20120224
  Transmission Date: 20120608
  Serious: Yes (Other)
  Sender: FDA-Public Use
  Company Number: JP-CELGENEUS-087-21660-11121403

PATIENT
  Sex: Female
  Weight: 55 kg

DRUGS (8)
  1. LORAZEPAM [Concomitant]
     Route: 048
     Dates: start: 20100929
  2. PREDNISOLONE [Concomitant]
     Route: 048
     Dates: start: 20101111, end: 20101215
  3. DECADRON [Concomitant]
     Route: 048
     Dates: start: 20101223
  4. LYRICA [Concomitant]
     Route: 048
     Dates: start: 20110328
  5. ABRAXANE [Suspect]
     Dosage: 300 MILLIGRAM
     Route: 041
     Dates: start: 20101201, end: 20110928
  6. OXYCONTIN [Concomitant]
     Route: 048
     Dates: start: 20100801
  7. FAMOTIDINE [Concomitant]
     Route: 048
     Dates: start: 20110406
  8. LASIX [Concomitant]
     Route: 048
     Dates: start: 20110406, end: 20110721

REACTIONS (1)
  - CYSTOID MACULAR OEDEMA [None]
